FAERS Safety Report 4797192-1 (Version None)
Quarter: 2005Q3

REPORT INFORMATION
  Report Type: 
  Country: None (occurrence: None)
  Receive Date: 20050916
  Receipt Date: 20050627
  Transmission Date: 20060218
  Serious: Yes (Other)
  Sender: FDA-Public Use
  Company Number: US-JNJFOC-20050404476

PATIENT
  Age: 49 Year
  Sex: Female
  Weight: 59.8748 kg

DRUGS (14)
  1. TOPAMAX [Suspect]
     Indication: BACK PAIN
     Dosage: 200 MG, 1 IN 1 DAY, ORAL
     Route: 048
  2. TOPAMAX [Suspect]
     Indication: NEURALGIA
     Dosage: 200 MG, 1 IN 1 DAY, ORAL
     Route: 048
  3. TOPAMAX [Suspect]
     Indication: PAIN PROPHYLAXIS
     Dosage: 200 MG, 1 IN 1 DAY, ORAL
     Route: 048
  4. SOMA [Concomitant]
  5. PREVACID [Concomitant]
  6. ALOE JUICE (ALOES) [Concomitant]
  7. FIORICET [Suspect]
  8. ALBUTEROL [Concomitant]
  9. KLONOPIN [Concomitant]
  10. LACTULOSE [Concomitant]
  11. AMOXICILLIN [Concomitant]
  12. METHADOSE (METHADONE HYDROCHLORIDE) [Concomitant]
  13. OXYCONTIN [Concomitant]
  14. DITROPAN [Concomitant]

REACTIONS (11)
  - ANXIETY [None]
  - CRYING [None]
  - DRUG DEPENDENCE [None]
  - DRUG WITHDRAWAL SYNDROME [None]
  - HEADACHE [None]
  - INSOMNIA [None]
  - MUSCLE SPASMS [None]
  - NAUSEA [None]
  - NOCTURIA [None]
  - THERAPEUTIC RESPONSE DECREASED [None]
  - WEIGHT DECREASED [None]
